FAERS Safety Report 9440099 (Version 2)
Quarter: 2013Q3

REPORT INFORMATION
  Report Type: Spontaneous
  Country: US (occurrence: US)
  Receive Date: 20130805
  Receipt Date: 20130816
  Transmission Date: 20140515
  Serious: Yes (Death, Life-Threatening, Other)
  Sender: FDA-Public Use
  Company Number: 2013SP005603

PATIENT
  Age: 87 Year
  Sex: Female
  Weight: 51.8 kg

DRUGS (19)
  1. VANCOMYCIN [Suspect]
     Indication: STAPHYLOCOCCAL BACTERAEMIA
     Route: 042
     Dates: start: 20130625, end: 20130625
  2. VANCOMYCIN [Suspect]
     Indication: STAPHYLOCOCCAL BACTERAEMIA
     Route: 042
     Dates: start: 20130703, end: 20130703
  3. PREDNISONE [Suspect]
     Indication: PAIN
     Route: 048
     Dates: start: 20130624, end: 20130703
  4. HEPARIN SODIUM [Suspect]
     Indication: THROMBOSIS PROPHYLAXIS
     Route: 058
     Dates: start: 20130623, end: 20130703
  5. ASPIRIN [Suspect]
     Indication: PROPHYLAXIS
     Route: 048
     Dates: start: 2011, end: 20130703
  6. NAFCILLIN [Suspect]
     Indication: STAPHYLOCOCCAL BACTERAEMIA
     Route: 042
     Dates: start: 20130630, end: 20130703
  7. NAFCILLIN [Suspect]
     Route: 042
     Dates: start: 20130630, end: 20130703
  8. DILTIAZEM HYDROCHLORIDE [Concomitant]
     Route: 048
     Dates: start: 2011, end: 20130703
  9. DOCUSATE SODIUM [Concomitant]
     Indication: CONSTIPATION
     Route: 048
     Dates: start: 20130625, end: 20130704
  10. LEVOTHYROXINE SODIUM [Concomitant]
     Indication: HYPOTHYROIDISM
     Route: 048
     Dates: start: 2011, end: 20130703
  11. LIDOCAINE [Concomitant]
     Indication: PAIN
     Route: 062
     Dates: start: 20130629, end: 20130703
  12. OMEPRAZOLE [Concomitant]
     Indication: GASTROOESOPHAGEAL REFLUX DISEASE
     Route: 048
     Dates: start: 2011, end: 20130703
  13. RIVASTIGMINE TARTRATE [Concomitant]
     Indication: DEMENTIA
     Route: 062
     Dates: start: 2010, end: 20130703
  14. RIVASTIGMINE TARTRATE [Concomitant]
     Indication: DEMENTIA
     Route: 062
     Dates: start: 20130624, end: 20130630
  15. PARACETAMOL [Concomitant]
     Indication: PAIN
     Route: 048
     Dates: start: 20130623, end: 20130703
  16. SALBUTAMOL [Concomitant]
     Indication: WHEEZING
     Dates: start: 20130628, end: 20130628
  17. LORAZEPAM [Concomitant]
     Indication: AGITATION
     Route: 042
     Dates: start: 20130629, end: 20130629
  18. ALPRAZOLAM [Concomitant]
     Indication: AGITATION
     Route: 048
     Dates: start: 20130628, end: 20130628
  19. FUROSEMIDE [Concomitant]
     Route: 042
     Dates: start: 20130629, end: 20130629

REACTIONS (3)
  - Lower gastrointestinal haemorrhage [Fatal]
  - Haemorrhage [Fatal]
  - Renal failure acute [Unknown]
